FAERS Safety Report 12790249 (Version 7)
Quarter: 2017Q1

REPORT INFORMATION
  Report Type: Spontaneous
  Country: GB (occurrence: GB)
  Receive Date: 20160928
  Receipt Date: 20170117
  Transmission Date: 20170428
  Serious: Yes (Hospitalization, Disabling, Other)
  Sender: FDA-Public Use
  Company Number: GB-ALLERGAN-1000087679

PATIENT
  Age: 43 Year
  Sex: Female
  Weight: 95 kg

DRUGS (3)
  1. DICLOFENAC [Concomitant]
     Active Substance: DICLOFENAC
     Indication: PRODUCT USED FOR UNKNOWN INDICATION
     Dosage: UNK UNK, PRN
     Route: 065
  2. CONSTELLA [Suspect]
     Active Substance: LINACLOTIDE
     Indication: GASTROINTESTINAL MOTILITY DISORDER
     Dosage: 290 ?G, UNK
     Route: 048
     Dates: start: 20160701, end: 20160916
  3. ASPIRIN. [Concomitant]
     Active Substance: ASPIRIN
     Indication: PRODUCT USED FOR UNKNOWN INDICATION
     Dosage: UNK UNK, PRN
     Route: 065

REACTIONS (111)
  - Rectal haemorrhage [Unknown]
  - Blood pressure orthostatic abnormal [Unknown]
  - Paraesthesia [Unknown]
  - Photophobia [Unknown]
  - Dry mouth [Unknown]
  - Groin pain [Unknown]
  - Faeces pale [Unknown]
  - Ocular hyperaemia [Unknown]
  - Headache [Unknown]
  - Sepsis [Unknown]
  - Anaphylactic reaction [Unknown]
  - Barrett^s oesophagus [Unknown]
  - Nervousness [Unknown]
  - Rash [Unknown]
  - Chromaturia [Unknown]
  - Urine odour abnormal [Unknown]
  - Feeling abnormal [Unknown]
  - Jaundice [Unknown]
  - Burning sensation [Not Recovered/Not Resolved]
  - Cough [Recovering/Resolving]
  - Insomnia [Unknown]
  - Lip swelling [Unknown]
  - Postural orthostatic tachycardia syndrome [Unknown]
  - Decreased appetite [Unknown]
  - Vomiting [Unknown]
  - Gastrooesophageal reflux disease [Unknown]
  - Dyspepsia [Unknown]
  - Confusional state [Unknown]
  - Chest pain [Not Recovered/Not Resolved]
  - Dyspnoea [Recovering/Resolving]
  - Pain [Unknown]
  - Blood bicarbonate decreased [Unknown]
  - Malaise [Unknown]
  - Tremor [Unknown]
  - Peripheral swelling [Not Recovered/Not Resolved]
  - Rash pustular [Unknown]
  - Panic attack [Unknown]
  - Regurgitation [Unknown]
  - Speech disorder [Unknown]
  - Tearfulness [Not Recovered/Not Resolved]
  - Obstructive airways disorder [Unknown]
  - Haemorrhage [Unknown]
  - Flushing [Unknown]
  - Hypotension [Unknown]
  - Urticaria [Unknown]
  - Drug hypersensitivity [Not Recovered/Not Resolved]
  - Flatulence [Unknown]
  - Breath odour [Unknown]
  - Dysphagia [Unknown]
  - Pyrexia [Unknown]
  - Cardiac disorder [Unknown]
  - Wheezing [Unknown]
  - Loss of libido [Not Recovered/Not Resolved]
  - Wound secretion [Unknown]
  - Swelling face [Unknown]
  - Abdominal distension [Not Recovered/Not Resolved]
  - Anal incontinence [Unknown]
  - Pain in extremity [Not Recovered/Not Resolved]
  - Oropharyngeal pain [Not Recovered/Not Resolved]
  - Sputum discoloured [Unknown]
  - Influenza like illness [Unknown]
  - Injury [Unknown]
  - Axillary pain [Unknown]
  - Syncope [Unknown]
  - Urine output increased [Unknown]
  - Oesophageal disorder [Not Recovered/Not Resolved]
  - Productive cough [Not Recovered/Not Resolved]
  - Rhinorrhoea [Unknown]
  - Diarrhoea [Unknown]
  - Loss of consciousness [Unknown]
  - Skin warm [Unknown]
  - Feeding disorder [Unknown]
  - Adverse event [Unknown]
  - Chills [Not Recovered/Not Resolved]
  - Hyperhidrosis [Not Recovered/Not Resolved]
  - Neck pain [Unknown]
  - Ear congestion [Unknown]
  - Aphonia [Unknown]
  - Memory impairment [Unknown]
  - Secretion discharge [Unknown]
  - Pharyngeal oedema [Unknown]
  - Infrequent bowel movements [Not Recovered/Not Resolved]
  - Mouth swelling [Unknown]
  - Anxiety [Unknown]
  - Urine analysis abnormal [Unknown]
  - Fatigue [Unknown]
  - Abdominal discomfort [Unknown]
  - Renal pain [Not Recovered/Not Resolved]
  - Musculoskeletal pain [Unknown]
  - Rash erythematous [Unknown]
  - Anorectal discomfort [Unknown]
  - Urinary incontinence [Unknown]
  - Musculoskeletal stiffness [Unknown]
  - Haemoptysis [Unknown]
  - Dysgeusia [Unknown]
  - Cytogenetic abnormality [Unknown]
  - Wound dehiscence [Unknown]
  - Abnormal faeces [Unknown]
  - Oesophageal spasm [Not Recovered/Not Resolved]
  - Abdominal pain [Not Recovered/Not Resolved]
  - Flank pain [Unknown]
  - Asthenia [Unknown]
  - Skin exfoliation [Unknown]
  - Eye swelling [Unknown]
  - Appendix disorder [Unknown]
  - Nausea [Unknown]
  - Skin discolouration [Not Recovered/Not Resolved]
  - Condition aggravated [Unknown]
  - Pruritus [Not Recovered/Not Resolved]
  - Eye haemorrhage [Unknown]
  - Myalgia [Unknown]

NARRATIVE: CASE EVENT DATE: 20160917
